FAERS Safety Report 5811469-X (Version None)
Quarter: 2008Q3

REPORT INFORMATION
  Report Type: 
  Country: None (occurrence: None)
  Receive Date: 20080711
  Receipt Date: 20080711
  Transmission Date: 20090109
  Serious: Yes (Life-Threatening, Hospitalization)
  Sender: FDA-Public Use
  Company Number: None

PATIENT
  Sex: Female
  Weight: 63.5036 kg

DRUGS (1)
  1. MORPHINE SULFATE ER 60 MG ETHEX CORP. [Suspect]
     Indication: CANCER PAIN
     Dosage: 120 MG. 1 MORN 1 EVE
     Dates: start: 20080518, end: 20080519

REACTIONS (2)
  - MEDICATION ERROR [None]
  - OVERDOSE [None]
